FAERS Safety Report 9598368 (Version 1)
Quarter: 2013Q4

REPORT INFORMATION
  Report Type: Spontaneous
  Country: US (occurrence: US)
  Receive Date: 20131004
  Receipt Date: 20131004
  Transmission Date: 20140711
  Serious: No
  Sender: FDA-Public Use
  Company Number: US-AMGEN-USASP2013023392

PATIENT
  Age: 63 Year
  Sex: Female
  Weight: 97.05 kg

DRUGS (14)
  1. ENBREL [Suspect]
     Indication: PRODUCT USED FOR UNKNOWN INDICATION
     Dosage: 50 MG, QWK
     Route: 058
  2. HUMULIN [Concomitant]
     Dosage: 50/50, UNK
  3. SERTRALINE [Concomitant]
     Dosage: 25 MG, UNK
  4. LOTREL [Concomitant]
     Dosage: 10-20 MG, UNK
  5. LANTUS [Concomitant]
     Dosage: 100/ML, UNK
  6. GABAPENTIN [Concomitant]
     Dosage: 100 MG, UNK
  7. CYCLOBENZAPRIN HCL [Concomitant]
     Dosage: 10 MG, UNK
  8. OMEPRAZOLE [Concomitant]
     Dosage: 20 MG, UNK
  9. AMLODIPINE BENAZEPRIL [Concomitant]
     Dosage: 10-20 MG, UNK
  10. ASPIRIN [Concomitant]
     Dosage: 81 MG, CHW, UNK
  11. ATORVASTATIN [Concomitant]
     Dosage: 10 MG, UNK
  12. MONTELUKAST [Concomitant]
     Dosage: 10 MG, UNK
  13. METHOTREXATE [Concomitant]
     Dosage: 50 MG/2 ML, UNK
  14. FOLIC ACID [Concomitant]
     Dosage: UNK

REACTIONS (6)
  - Joint swelling [Unknown]
  - Pain in extremity [Unknown]
  - Back pain [Unknown]
  - Arthralgia [Unknown]
  - Local swelling [Unknown]
  - Local swelling [Unknown]
